FAERS Safety Report 7767296-X (Version None)
Quarter: 2011Q3

REPORT INFORMATION
  Report Type: 
  Country: None (occurrence: None)
  Receive Date: 20110922
  Receipt Date: 20110525
  Transmission Date: 20111222
  Serious: No
  Sender: FDA-Public Use
  Company Number: US-ASTRAZENECA-2011SE32515

PATIENT
  Age: 56 Year
  Sex: Male
  Weight: 124.7 kg

DRUGS (5)
  1. SEROQUEL [Suspect]
     Route: 048
     Dates: start: 20110523
  2. LITHIUM CARBONATE [Concomitant]
  3. SEROQUEL [Suspect]
     Route: 048
     Dates: start: 20070101, end: 20110523
  4. COUMADIN [Concomitant]
  5. SEROQUEL [Suspect]
     Indication: MANIA
     Route: 048
     Dates: start: 20030901, end: 20050101

REACTIONS (6)
  - INCREASED APPETITE [None]
  - OFF LABEL USE [None]
  - MANIA [None]
  - DRUG WITHDRAWAL SYNDROME [None]
  - DRUG INEFFECTIVE FOR UNAPPROVED INDICATION [None]
  - INSOMNIA [None]
